FAERS Safety Report 9878173 (Version 2)
Quarter: 2014Q1

REPORT INFORMATION
  Report Type: Spontaneous
  Country: US (occurrence: US)
  Receive Date: 20140206
  Receipt Date: 20140310
  Transmission Date: 20141002
  Serious: Yes (Life-Threatening, Hospitalization, Other)
  Sender: FDA-Public Use
  Company Number: US-ASTRAZENECA-2014SE07039

PATIENT
  Age: 79 Year
  Sex: Male
  Weight: 63.5 kg

DRUGS (3)
  1. BRILINTA [Suspect]
     Indication: PERCUTANEOUS CORONARY INTERVENTION
     Route: 048
  2. BRILINTA [Suspect]
     Indication: STENT PLACEMENT
     Route: 048
  3. ASPIRIN [Concomitant]

REACTIONS (3)
  - Aortic stenosis [Unknown]
  - Haemorrhage [Unknown]
  - Gastrointestinal haemorrhage [Recovering/Resolving]
